FAERS Safety Report 25735709 (Version 1)
Quarter: 2025Q3

REPORT INFORMATION
  Report Type: Report from Study
  Country: CA (occurrence: CA)
  Receive Date: 20250828
  Receipt Date: 20250828
  Transmission Date: 20251020
  Serious: Yes (Hospitalization)
  Sender: CSL BEHRING
  Company Number: CA-BEH-2025202424

PATIENT
  Age: 31 Year
  Sex: Female
  Weight: 60 kg

DRUGS (5)
  1. HAEMATE P [Suspect]
     Active Substance: ANTIHEMOPHILIC FACTOR HUMAN
     Indication: Von Willebrand^s disease
     Route: 042
     Dates: start: 20230927, end: 202411
  2. HAEMATE P [Suspect]
     Active Substance: ANTIHEMOPHILIC FACTOR HUMAN
     Dosage: 2000 IU, QD
     Route: 042
     Dates: start: 20230927
  3. Tranexamic acide [Concomitant]
  4. IRON [Concomitant]
     Active Substance: IRON
  5. PANTOPRAZOLE [Concomitant]
     Active Substance: PANTOPRAZOLE

REACTIONS (5)
  - Delivery [Unknown]
  - Labour induction [Unknown]
  - Menstrual disorder [Unknown]
  - Maternal exposure during pregnancy [Unknown]
  - Poor venous access [Unknown]

NARRATIVE: CASE EVENT DATE: 20250801
